FAERS Safety Report 13696964 (Version 1)
Quarter: 2017Q2

REPORT INFORMATION
  Report Type: Spontaneous
  Country: GB (occurrence: GB)
  Receive Date: 20170628
  Receipt Date: 20170628
  Transmission Date: 20170830
  Serious: Yes (Other)
  Sender: FDA-Public Use
  Company Number: GB-ASCEND THERAPEUTICS-2022589

PATIENT
  Age: 48 Year
  Sex: Female

DRUGS (2)
  1. ESTROGEL [Suspect]
     Active Substance: ESTRADIOL
     Indication: PRODUCT USED FOR UNKNOWN INDICATION
     Route: 067
  2. ESTROGEL [Suspect]
     Active Substance: ESTRADIOL
     Route: 067

REACTIONS (2)
  - Incorrect route of drug administration [None]
  - Anaphylactic shock [Recovering/Resolving]
